FAERS Safety Report 6106267-6 (Version None)
Quarter: 2009Q1

REPORT INFORMATION
  Report Type: 
  Country: None (occurrence: None)
  Receive Date: 20090306
  Receipt Date: 20090223
  Transmission Date: 20090719
  Serious: Yes (Other)
  Sender: FDA-Public Use
  Company Number: PHHY2009FR05390

PATIENT
  Sex: Female
  Weight: 66 kg

DRUGS (4)
  1. ACLASTA [Suspect]
     Indication: LUMBAR VERTEBRAL FRACTURE
     Dosage: UNK
     Dates: start: 20090209
  2. ACLASTA [Suspect]
     Indication: THORACIC VERTEBRAL FRACTURE
  3. ROCEPHIN [Concomitant]
     Dosage: UNK
     Dates: start: 20090208
  4. SOLUPRED [Concomitant]
     Indication: BRONCHIECTASIS
     Dosage: 40 MG/DAY
     Dates: start: 20090204

REACTIONS (10)
  - ABDOMINAL PAIN UPPER [None]
  - BACK PAIN [None]
  - DIARRHOEA [None]
  - EAR PAIN [None]
  - GASTROINTESTINAL DISORDER [None]
  - HYPERGLYCAEMIA [None]
  - MIGRAINE [None]
  - PAIN IN EXTREMITY [None]
  - PYREXIA [None]
  - VOMITING [None]
